FAERS Safety Report 5921143-7 (Version None)
Quarter: 2008Q4

REPORT INFORMATION
  Report Type: 
  Country: None (occurrence: None)
  Receive Date: 20081016
  Receipt Date: 20081013
  Transmission Date: 20090506
  Serious: Yes (Life-Threatening, Hospitalization)
  Sender: FDA-Public Use
  Company Number: US-SANOFI-SYNTHELABO-F01200801573

PATIENT

DRUGS (5)
  1. BENICAR [Suspect]
     Indication: DRUG USE FOR UNKNOWN INDICATION
     Dosage: UNK
     Route: 065
  2. LEUCOVORIN CALCIUM [Suspect]
     Dosage: 400 MG/M2
     Route: 042
  3. BEVACIZUMAB [Suspect]
     Route: 042
     Dates: start: 20080625
  4. ELOXATIN [Suspect]
     Indication: COLON CANCER
     Route: 042
  5. FLUOROURACIL [Suspect]
     Route: 042

REACTIONS (8)
  - ANOREXIA [None]
  - DIARRHOEA [None]
  - DISEASE PROGRESSION [None]
  - GASTROINTESTINAL ANASTOMOTIC LEAK [None]
  - GASTROINTESTINAL PERFORATION [None]
  - PERITONEAL INFECTION [None]
  - RENAL FAILURE [None]
  - WOUND INFECTION [None]
